FAERS Safety Report 9346284 (Version 1)
Quarter: 2013Q2

REPORT INFORMATION
  Report Type: Spontaneous
  Country: BR (occurrence: BR)
  Receive Date: 20130613
  Receipt Date: 20130613
  Transmission Date: 20140414
  Serious: Yes (Hospitalization)
  Sender: FDA-Public Use
  Company Number: BR-GE HEALTHCARE MEDICAL DIAGNOSTICS-VISP-PR-1306S-0681

PATIENT
  Age: 73 Year
  Sex: Female
  Weight: 73 kg

DRUGS (7)
  1. VISIPAQUE [Suspect]
     Indication: ABDOMINAL PAIN
     Route: 042
     Dates: start: 20130607, end: 20130607
  2. VISIPAQUE [Suspect]
     Indication: DIAGNOSTIC PROCEDURE
  3. MAREVAN [Concomitant]
     Indication: ANTICOAGULANT THERAPY
     Route: 048
  4. DIOVAN [Concomitant]
     Indication: HYPERTENSION
  5. PURAN [Concomitant]
     Indication: THYROID THERAPY
  6. SIMVASTATIN [Concomitant]
     Indication: BLOOD CHOLESTEROL
  7. RITMORM [Concomitant]
     Indication: HYPERTENSION

REACTIONS (1)
  - Respiratory arrest [Recovered/Resolved]
